FAERS Safety Report 7089022-2 (Version None)
Quarter: 2010Q4

REPORT INFORMATION
  Report Type: 
  Country: None (occurrence: None)
  Receive Date: 20101108
  Receipt Date: 20101102
  Transmission Date: 20110411
  Serious: Yes (Hospitalization)
  Sender: FDA-Public Use
  Company Number: A0890396A

PATIENT
  Sex: Male

DRUGS (14)
  1. ZIAGEN [Suspect]
     Dosage: 300MG TWICE PER DAY
     Route: 065
  2. VIRAMUNE [Concomitant]
     Dosage: 200MG TWICE PER DAY
     Route: 065
  3. REYATAZ [Concomitant]
     Dosage: 300MG PER DAY
     Route: 065
  4. NORVIR [Concomitant]
     Dosage: 100MG PER DAY
     Route: 065
  5. ACEBUTOLOL [Concomitant]
     Dosage: 50MG TWICE PER DAY
     Route: 065
  6. ATACAND [Concomitant]
     Dosage: 16MG PER DAY
     Route: 065
  7. CRESTOR [Concomitant]
     Dosage: 10MG PER DAY
     Route: 065
  8. SUCRALFATE [Concomitant]
     Dosage: 1G FOUR TIMES PER DAY
     Route: 065
  9. ATIVAN [Concomitant]
     Dosage: 1MG AS REQUIRED
     Route: 065
  10. NIASPAN [Concomitant]
     Dosage: 1000MG AT NIGHT
     Route: 065
  11. VITAMIN D3 [Concomitant]
     Dosage: 400UD TWICE PER DAY
     Route: 065
  12. CODEINE [Concomitant]
     Dosage: 30MG PER DAY
     Route: 065
  13. TIAZAC [Concomitant]
     Dosage: 120MG PER DAY
     Route: 065
  14. NITRO-DUR [Concomitant]
     Dosage: .6MG UNKNOWN
     Route: 065

REACTIONS (2)
  - ANGINA PECTORIS [None]
  - MYOCARDIAL INFARCTION [None]
